FAERS Safety Report 6354221-1 (Version None)
Quarter: 2009Q3

REPORT INFORMATION
  Report Type: 
  Country: None (occurrence: None)
  Receive Date: 20090914
  Receipt Date: 20090902
  Transmission Date: 20100115
  Serious: Yes (Other)
  Sender: FDA-Public Use
  Company Number: PHHY2009JP38089

PATIENT
  Age: 65 Year
  Sex: Male

DRUGS (3)
  1. DIOVAN [Suspect]
     Indication: HYPERTENSION
     Dosage: 40 MG, QD
     Route: 048
     Dates: start: 20070101
  2. RENIVEZE [Concomitant]
     Dosage: 25 MG, UNK
     Route: 048
     Dates: start: 20070101
  3. BASEN [Concomitant]
     Dosage: 0.2 MG, UNK
     Route: 048
     Dates: start: 20070101, end: 20090701

REACTIONS (1)
  - NEPHROLITHIASIS [None]
